FAERS Safety Report 7640358-3 (Version None)
Quarter: 2011Q3

REPORT INFORMATION
  Report Type: 
  Country: None (occurrence: None)
  Receive Date: 20110728
  Receipt Date: 20110718
  Transmission Date: 20111222
  Serious: Yes (Other)
  Sender: FDA-Public Use
  Company Number: US-BAYER-201017067NA

PATIENT
  Sex: Female
  Weight: 61 kg

DRUGS (4)
  1. YASMIN [Suspect]
     Indication: PREMENSTRUAL SYNDROME
  2. FLUOXETINE [Concomitant]
  3. YASMIN [Suspect]
     Indication: CONTRACEPTION
     Route: 048
     Dates: start: 20031007, end: 20070701
  4. CHLORDIAZEPOXIDE [Concomitant]
     Dosage: 25 MG, UNK

REACTIONS (4)
  - PAIN [None]
  - GALLBLADDER POLYP [None]
  - GASTROINTESTINAL DISORDER [None]
  - ABDOMINAL PAIN [None]
